FAERS Safety Report 11589531 (Version 5)
Quarter: 2017Q2

REPORT INFORMATION
  Report Type: Spontaneous
  Country: US (occurrence: US)
  Receive Date: 20151002
  Receipt Date: 20170607
  Transmission Date: 20170829
  Serious: Yes (Other)
  Sender: FDA-Public Use
  Company Number: US-JNJFOC-20150912971

PATIENT
  Age: 14 Year
  Sex: Male

DRUGS (2)
  1. RISPERDAL [Suspect]
     Active Substance: RISPERIDONE
     Indication: PRODUCT USED FOR UNKNOWN INDICATION
     Route: 048
  2. RISPERDAL [Suspect]
     Active Substance: RISPERIDONE
     Indication: THINKING ABNORMAL
     Route: 048
     Dates: start: 20001214, end: 20020706

REACTIONS (6)
  - Abnormal weight gain [Unknown]
  - Product use in unapproved indication [Unknown]
  - Hyperprolactinaemia [Unknown]
  - Somnolence [Unknown]
  - Gynaecomastia [Unknown]
  - Off label use [Unknown]

NARRATIVE: CASE EVENT DATE: 20001214
